FAERS Safety Report 7220259-5 (Version None)
Quarter: 2011Q1

REPORT INFORMATION
  Report Type: 
  Country: None (occurrence: None)
  Receive Date: 20110111
  Receipt Date: 20110105
  Transmission Date: 20110831
  Serious: Yes (Death, Hospitalization)
  Sender: FDA-Public Use
  Company Number: JP-ACTELION-A-CH2011-43510

PATIENT
  Sex: Male
  Weight: 51 kg

DRUGS (14)
  1. FUROSEMIDE [Concomitant]
  2. BOSENTAN TABLET 62.5 MG JPN [Suspect]
     Dosage: 62.5 MG, BID
     Route: 048
     Dates: start: 20060220, end: 20060225
  3. TRAZODONE HYDROCHLORIDE [Concomitant]
  4. SPIRONOLACTONE [Concomitant]
  5. BERAPROST SODIUM [Concomitant]
  6. ALLOPURINOL [Concomitant]
  7. ZOLPIDEM TARTRATE [Concomitant]
  8. BOSENTAN TABLET 62.5 MG JPN [Suspect]
     Dosage: 93.75 MG, QD
     Route: 048
     Dates: start: 20060411, end: 20060417
  9. FLUNITRAZEPAM [Concomitant]
  10. OXYGEN [Concomitant]
  11. BOSENTAN TABLET 62.5 MG JPN [Suspect]
     Indication: PULMONARY ARTERIAL HYPERTENSION
     Dosage: 62.5 MG, BID
     Route: 048
     Dates: start: 20060418, end: 20070411
  12. BOSENTAN TABLET 62.5 MG JPN [Suspect]
     Dosage: 62.5 MG, QD
     Route: 048
     Dates: start: 20060226, end: 20060410
  13. WARFARIN POTASSIUM [Concomitant]
  14. AZOSEMIDE [Concomitant]

REACTIONS (2)
  - PULMONARY ARTERIAL HYPERTENSION [None]
  - CONDITION AGGRAVATED [None]
